FAERS Safety Report 9980363 (Version 1)
Quarter: 2014Q1

REPORT INFORMATION
  Report Type: Spontaneous
  Country: DE (occurrence: None)
  Receive Date: 20140305
  Receipt Date: 20140305
  Transmission Date: 20141002
  Serious: Yes (Hospitalization)
  Sender: FDA-Public Use
  Company Number: 214MPI00143

PATIENT
  Age: 55 Year
  Sex: Female

DRUGS (10)
  1. BRENTUXIMAB VEDOTIN (BRENTUXIMAB VEDOTIN) INJECTION [Suspect]
     Indication: HODGKIN^S DISEASE
     Route: 042
     Dates: start: 20131011, end: 20140210
  2. ETOPOSIDE (ETOPOSIDE) [Suspect]
     Indication: HODGKIN^S DISEASE
     Route: 042
     Dates: start: 20131012, end: 20140213
  3. CYCLOPHOSPHAMIDE (CYCLOPHOSOHAMIDE) [Suspect]
     Indication: HODGKIN^S DISEASE
     Route: 042
     Dates: start: 20131012, end: 20140211
  4. PROCARBAZINE (PROCARBAZINE) [Suspect]
     Indication: HODGKIN^S DISEASE
     Route: 048
     Dates: start: 20131012, end: 20140217
  5. PREDNISONE (PREDNISONE) [Suspect]
     Indication: HODGKIN^S DISEASE
     Route: 048
     Dates: start: 20131012, end: 20140211
  6. DOXORUBICIN (DOXORUBICIN) (DOXORUBICIN) [Suspect]
     Indication: HODGKIN^S DISEASE
     Route: 042
     Dates: start: 20131012, end: 20140218
  7. ACIC (ACICLOVIR) [Concomitant]
  8. EUSAPRIM (SULFAMETHOXAZOLE, TRIMETHOPRIM0 [Concomitant]
  9. RANTIC (RANITIDINE HYDROCHLORIDE) [Concomitant]
  10. ARTELAC (HYPROMELLOSE) [Concomitant]

REACTIONS (1)
  - Infection [None]
